FAERS Safety Report 9549400 (Version 1)
Quarter: 2013Q3

REPORT INFORMATION
  Report Type: Spontaneous
  Country: MK (occurrence: MK)
  Receive Date: 20130924
  Receipt Date: 20130924
  Transmission Date: 20140515
  Serious: Yes (Hospitalization)
  Sender: FDA-Public Use
  Company Number: MK-BAYER-2013-114862

PATIENT
  Age: 57 Year
  Sex: Female

DRUGS (1)
  1. ASPIRIN [Suspect]
     Indication: CARDIOVASCULAR EVENT PROPHYLAXIS
     Dosage: 100 MG, ONCE
     Route: 048
     Dates: start: 201305, end: 201305

REACTIONS (2)
  - Asphyxia [Recovered/Resolved]
  - Asthma [Recovered/Resolved]
